FAERS Safety Report 9502681 (Version 4)
Quarter: 2013Q4

REPORT INFORMATION
  Report Type: Spontaneous
  Country: IE (occurrence: IE)
  Receive Date: 20130906
  Receipt Date: 20131226
  Transmission Date: 20140711
  Serious: Yes (Other)
  Sender: FDA-Public Use
  Company Number: IE-MILLENNIUM PHARMACEUTICALS, INC.-2013JNJ000148

PATIENT
  Sex: 0

DRUGS (4)
  1. VELCADE [Suspect]
     Indication: PLASMA CELL MYELOMA
     Dosage: 1 MG/M2, UNK
     Route: 058
     Dates: start: 20130422
  2. LANSOPRAZOLE [Concomitant]
  3. MOTILIUM                           /00498201/ [Concomitant]
  4. VALTRAX [Concomitant]

REACTIONS (1)
  - Musculoskeletal stiffness [Not Recovered/Not Resolved]
